APPROVED DRUG PRODUCT: TARPEYO
Active Ingredient: BUDESONIDE
Strength: 4MG
Dosage Form/Route: CAPSULE, DELAYED RELEASE;ORAL
Application: N215935 | Product #001
Applicant: CALLIDITAS THERAPEUTICS AB
Approved: Dec 15, 2021 | RLD: Yes | RS: Yes | Type: RX

PATENTS:
Patent 11896719 | Expires: Jan 23, 2043
Patent 12171882 | Expires: Jan 23, 2043
Patent 12171882 | Expires: Jan 23, 2043
Patent 12311057 | Expires: Jan 23, 2043
Patent 12311057 | Expires: Jan 23, 2043
Patent 12311057 | Expires: Jan 23, 2043
Patent 8491932 | Expires: May 7, 2029
Patent 8491932 | Expires: May 7, 2029
Patent 12171883 | Expires: Jan 23, 2043

EXCLUSIVITY:
Code: ODE-389 | Date: Dec 15, 2028
Code: ODE-464 | Date: Dec 20, 2030